FAERS Safety Report 4709514-8 (Version None)
Quarter: 2005Q3

REPORT INFORMATION
  Report Type: 
  Country: None (occurrence: None)
  Receive Date: 20050706
  Receipt Date: 20050706
  Transmission Date: 20060218
  Serious: Yes (Disabling)
  Sender: FDA-Public Use
  Company Number: None

PATIENT
  Sex: Female
  Weight: 66.6788 kg

DRUGS (1)
  1. LEVAQUIN [Suspect]
     Indication: URINARY TRACT INFECTION
     Dosage: ONE   DAILY   ORAL
     Route: 048
     Dates: start: 20050624, end: 20050630

REACTIONS (4)
  - ANXIETY [None]
  - DIZZINESS [None]
  - TENDON RUPTURE [None]
  - TENDONITIS [None]
